FAERS Safety Report 17924697 (Version 5)
Quarter: 2020Q3

REPORT INFORMATION
  Report Type: Spontaneous
  Country: AR (occurrence: AR)
  Receive Date: 20200622
  Receipt Date: 20200729
  Transmission Date: 20201103
  Serious: Yes (Other)
  Sender: FDA-Public Use
  Company Number: AR-MYLANLABS-2020M1033658

PATIENT
  Age: 37 Year
  Sex: Male

DRUGS (5)
  1. HALOPERIDOL. [Concomitant]
     Active Substance: HALOPERIDOL
     Dosage: UNK
  2. VALCOTE                            /00228501/ [Concomitant]
     Dosage: LOW DOSE
  3. LAPENAX [Suspect]
     Active Substance: CLOZAPINE
     Dosage: 150 MILLIGRAM
  4. LAPENAX [Suspect]
     Active Substance: CLOZAPINE
     Indication: PRODUCT USED FOR UNKNOWN INDICATION
     Dosage: UNK MILLIGRAM
     Dates: start: 20130828
  5. LAPENAX [Suspect]
     Active Substance: CLOZAPINE
     Dosage: UNK
     Dates: end: 20200618

REACTIONS (7)
  - Leukopenia [Recovered/Resolved]
  - Haemoglobin decreased [Recovering/Resolving]
  - Lymphocyte count increased [Recovered/Resolved]
  - Neutropenia [Recovering/Resolving]
  - Red blood cell count decreased [Recovering/Resolving]
  - Platelet count decreased [Recovered/Resolved]
  - Haematocrit decreased [Recovering/Resolving]

NARRATIVE: CASE EVENT DATE: 20200326
